FAERS Safety Report 5132607-0 (Version None)
Quarter: 2006Q4

REPORT INFORMATION
  Report Type: 
  Country: None (occurrence: None)
  Receive Date: 20061023
  Receipt Date: 20061011
  Transmission Date: 20070319
  Serious: Yes (Congenital Anomaly)
  Sender: FDA-Public Use
  Company Number: US-ROCHE-467011

PATIENT
  Sex: Male
  Weight: 2.1 kg

DRUGS (12)
  1. ACCUTANE [Suspect]
     Dates: start: 19990420, end: 19990520
  2. ACCUTANE [Suspect]
     Dates: start: 19980321
  3. ACCUTANE [Suspect]
     Dates: end: 19980815
  4. PREDNISONE TAB [Concomitant]
  5. ASACOL [Concomitant]
  6. VICODIN [Concomitant]
  7. PHENERGAN [Concomitant]
  8. AMBIEN [Concomitant]
  9. MESALAMINE [Concomitant]
  10. HYDROCORTISONE ACETATE [Concomitant]
  11. FISH OIL [Concomitant]
  12. PRENATAL VITAMINS [Concomitant]

REACTIONS (5)
  - BRADYCARDIA FOETAL [None]
  - CEREBRAL VENTRICLE DILATATION [None]
  - DRUG EXPOSURE DURING PREGNANCY [None]
  - PREMATURE BABY [None]
  - PREMATURE RUPTURE OF MEMBRANES [None]
